FAERS Safety Report 4339470-6 (Version None)
Quarter: 2004Q2

REPORT INFORMATION
  Report Type: 
  Country: None (occurrence: None)
  Receive Date: 20040412
  Receipt Date: 20040329
  Transmission Date: 20050107
  Serious: Yes (Hospitalization, Disabling)
  Sender: FDA-Public Use
  Company Number: 2004206763DE

PATIENT
  Age: 83 Year
  Sex: Female

DRUGS (4)
  1. BEXTRA [Suspect]
     Indication: LUMBAR VERTEBRAL FRACTURE
     Dosage: ORAL
     Route: 048
     Dates: start: 20040201, end: 20040301
  2. METOPROLOL [Concomitant]
  3. FUROSEMIDE [Concomitant]
  4. COTRIM [Concomitant]

REACTIONS (3)
  - DISORIENTATION [None]
  - HALLUCINATION [None]
  - INCONTINENCE [None]
